FAERS Safety Report 8184826-7 (Version None)
Quarter: 2012Q1

REPORT INFORMATION
  Report Type: 
  Country: None (occurrence: None)
  Receive Date: 20120305
  Receipt Date: 20120228
  Transmission Date: 20120608
  Serious: No
  Sender: FDA-Public Use
  Company Number: US-BAYER-2012-020483

PATIENT
  Age: 52 Year
  Sex: Female
  Weight: 56 kg

DRUGS (3)
  1. VITAMIN D [Concomitant]
  2. ALEVE (CAPLET) [Suspect]
  3. MULTI-VITAMIN [Concomitant]

REACTIONS (1)
  - NO ADVERSE EVENT [None]
